FAERS Safety Report 11976840 (Version 2)
Quarter: 2017Q2

REPORT INFORMATION
  Report Type: Spontaneous
  Country: US (occurrence: US)
  Receive Date: 20160129
  Receipt Date: 20170619
  Transmission Date: 20170829
  Serious: No
  Sender: FDA-Public Use
  Company Number: US-BIOGEN-2016BI00177449

PATIENT
  Sex: Female

DRUGS (1)
  1. TYSABRI [Suspect]
     Active Substance: NATALIZUMAB
     Indication: MULTIPLE SCLEROSIS
     Route: 065
     Dates: start: 20151221

REACTIONS (1)
  - Memory impairment [Not Recovered/Not Resolved]
